FAERS Safety Report 4322782-X (Version None)
Quarter: 2004Q1

REPORT INFORMATION
  Report Type: 
  Country: None (occurrence: None)
  Receive Date: 20040324
  Receipt Date: 20040302
  Transmission Date: 20041129
  Serious: Yes (Hospitalization)
  Sender: FDA-Public Use
  Company Number: FR-ROCHE-360408

PATIENT
  Age: 53 Year
  Sex: Male
  Weight: 58 kg

DRUGS (5)
  1. PEGASYS [Suspect]
     Indication: HEPATITIS C
     Dosage: TAKEN WEEKLY
     Route: 058
     Dates: start: 20030909, end: 20040116
  2. REBETOL [Suspect]
     Indication: HEPATITIS C
     Route: 048
     Dates: start: 20030909
  3. REBETOL [Suspect]
     Route: 048
     Dates: end: 20040116
  4. LANZOR [Concomitant]
     Route: 048
     Dates: start: 20030513
  5. AVLOCARDYL [Concomitant]
     Route: 048

REACTIONS (1)
  - DISSEMINATED TUBERCULOSIS [None]
